FAERS Safety Report 11871037 (Version 1)
Quarter: 2015Q4

REPORT INFORMATION
  Report Type: Spontaneous
  Country: US (occurrence: US)
  Receive Date: 20151228
  Receipt Date: 20151228
  Transmission Date: 20160305
  Serious: No
  Sender: FDA-Public Use
  Company Number: US-B.I. PHARMACEUTICALS,INC./RIDGEFIELD-2015-BI-70681BP

PATIENT
  Age: 46 Year
  Sex: Male
  Weight: 91 kg

DRUGS (7)
  1. PROTONIX [Concomitant]
     Active Substance: PANTOPRAZOLE SODIUM
     Indication: GASTROOESOPHAGEAL REFLUX DISEASE
  2. PRADAXA [Suspect]
     Active Substance: DABIGATRAN ETEXILATE MESYLATE
     Indication: THROMBOSIS PROPHYLAXIS
     Dosage: 300 MG
     Route: 048
     Dates: start: 20151208
  3. OXYCODONE [Concomitant]
     Active Substance: OXYCODONE
     Indication: BACK PAIN
     Route: 065
  4. PRADAXA [Suspect]
     Active Substance: DABIGATRAN ETEXILATE MESYLATE
     Indication: THROMBOSIS PROPHYLAXIS
  5. PROTONIX [Concomitant]
     Active Substance: PANTOPRAZOLE SODIUM
     Indication: GASTROINTESTINAL HAEMORRHAGE
     Dosage: 20 MG
     Route: 048
     Dates: start: 2014
  6. FINASTERIDE. [Concomitant]
     Active Substance: FINASTERIDE
     Indication: ALOPECIA
     Dosage: 0.25 MG
     Route: 048
     Dates: start: 2012
  7. OXYCONTIN [Concomitant]
     Active Substance: OXYCODONE HYDROCHLORIDE
     Indication: BACK PAIN
     Route: 065

REACTIONS (5)
  - Hiccups [Not Recovered/Not Resolved]
  - Dizziness [Not Recovered/Not Resolved]
  - Pollakiuria [Not Recovered/Not Resolved]
  - Gastrointestinal pain [Not Recovered/Not Resolved]
  - Thirst [Not Recovered/Not Resolved]

NARRATIVE: CASE EVENT DATE: 20151209
